FAERS Safety Report 13080192 (Version 2)
Quarter: 2017Q1

REPORT INFORMATION
  Report Type: Report from Study
  Country: FR (occurrence: FR)
  Receive Date: 20170103
  Receipt Date: 20170308
  Transmission Date: 20170428
  Serious: Yes (Hospitalization, Other)
  Sender: FDA-Public Use
  Company Number: PHHO2016FR003411

PATIENT
  Age: 61 Year
  Sex: Female

DRUGS (4)
  1. ERL 080A [Suspect]
     Active Substance: MYCOPHENOLIC ACID
     Indication: RENAL TRANSPLANT
     Dosage: 1080 MG, BID
     Route: 065
     Dates: start: 20160201
  2. NEORAL [Suspect]
     Active Substance: CYCLOSPORINE
     Dosage: 110 MG, BID
     Route: 065
     Dates: start: 20160225
  3. NEORAL [Suspect]
     Active Substance: CYCLOSPORINE
     Indication: RENAL TRANSPLANT
     Dosage: 250 MG, BID
     Route: 065
     Dates: start: 20160201, end: 20160218
  4. NEORAL [Suspect]
     Active Substance: CYCLOSPORINE
     Dosage: 140 MG, BID
     Route: 065
     Dates: start: 20160219, end: 20160224

REACTIONS (2)
  - Complications of transplanted kidney [Recovered/Resolved]
  - Diabetes mellitus [Recovered/Resolved with Sequelae]

NARRATIVE: CASE EVENT DATE: 20160201
